FAERS Safety Report 7275817-9 (Version None)
Quarter: 2011Q1

REPORT INFORMATION
  Report Type: 
  Country: None (occurrence: None)
  Receive Date: 20110202
  Receipt Date: 20110202
  Transmission Date: 20110831
  Serious: Yes (Life-Threatening, Hospitalization)
  Sender: FDA-Public Use
  Company Number: None

PATIENT
  Age: 67 Year
  Sex: Male
  Weight: 111.8 kg

DRUGS (4)
  1. SIMVASTATIN [Suspect]
     Indication: DIABETES MELLITUS
     Dosage: 20 MG AT BEDTIME PO
     Route: 048
     Dates: start: 20100112, end: 20110104
  2. SIMVASTATIN [Suspect]
     Indication: HYPERLIPIDAEMIA
     Dosage: 20 MG AT BEDTIME PO
     Route: 048
     Dates: start: 20100112, end: 20110104
  3. VALSARTAN [Suspect]
     Indication: CARDIAC FAILURE CONGESTIVE
     Dosage: 320 MG EVERY DAY PO
     Route: 048
     Dates: start: 20100112
  4. VALSARTAN [Suspect]
     Indication: HYPERTENSION
     Dosage: 320 MG EVERY DAY PO
     Route: 048
     Dates: start: 20100112

REACTIONS (8)
  - ARTHRALGIA [None]
  - HYPOTENSION [None]
  - MYALGIA [None]
  - BLOOD CREATINE INCREASED [None]
  - BLOOD CREATINE PHOSPHOKINASE INCREASED [None]
  - FATIGUE [None]
  - RENAL FAILURE ACUTE [None]
  - MYOSITIS [None]
